FAERS Safety Report 10535699 (Version 2)
Quarter: 2014Q4

REPORT INFORMATION
  Report Type: Spontaneous
  Country: US (occurrence: US)
  Receive Date: 20141022
  Receipt Date: 20141022
  Transmission Date: 20150529
  Serious: No
  Sender: FDA-Public Use
  Company Number: US-RECKITT BENCKISER PHARMACEUTICAL, INC-RB-58190-2013

PATIENT

DRUGS (6)
  1. SUBOXONE [Suspect]
     Active Substance: BUPRENORPHINE HYDROCHLORIDE\NALOXONE HYDROCHLORIDE
     Dosage: SUBOXONE FILM
     Route: 060
     Dates: start: 2013
  2. SUBOXONE [Suspect]
     Active Substance: BUPRENORPHINE HYDROCHLORIDE\NALOXONE HYDROCHLORIDE
     Dosage: SUBOXONE FILM
     Route: 060
     Dates: start: 201308, end: 201308
  3. SUBOXONE [Suspect]
     Active Substance: BUPRENORPHINE HYDROCHLORIDE\NALOXONE HYDROCHLORIDE
     Dosage: SUBOXONE FILM
     Route: 060
     Dates: start: 201308, end: 2013
  4. XANAX [Concomitant]
     Active Substance: ALPRAZOLAM
     Indication: ANXIETY
     Dosage: DOSING DETAILS UNKNOWN
     Route: 065
  5. SUBOXONE [Suspect]
     Active Substance: BUPRENORPHINE HYDROCHLORIDE\NALOXONE HYDROCHLORIDE
     Indication: DRUG DEPENDENCE
     Dosage: SUBOXONE FILM
     Route: 060
     Dates: start: 201307, end: 201308
  6. ALCOHOL. [Suspect]
     Active Substance: ALCOHOL
     Indication: ALCOHOLISM
     Dosage: DOSING DETAILS UNKNOWN
     Route: 065
     Dates: start: 2013, end: 2013

REACTIONS (5)
  - Feeling abnormal [Recovered/Resolved]
  - Alcohol abuse [Recovered/Resolved]
  - Wrong technique in drug usage process [Not Recovered/Not Resolved]
  - Coordination abnormal [Recovered/Resolved]
  - Underdose [Not Recovered/Not Resolved]

NARRATIVE: CASE EVENT DATE: 2013
